FAERS Safety Report 19269279 (Version 3)
Quarter: 2023Q2

REPORT INFORMATION
  Report Type: Spontaneous
  Country: US (occurrence: US)
  Receive Date: 20210517
  Receipt Date: 20230512
  Transmission Date: 20230721
  Serious: No
  Sender: FDA-Public Use
  Company Number: US-BAUSCH-BL-2021-017007

PATIENT
  Age: 66 Year
  Sex: Female
  Weight: 77.180 kg

DRUGS (3)
  1. XIFAXAN [Suspect]
     Active Substance: RIFAXIMIN
     Indication: Hepatic encephalopathy
     Route: 048
     Dates: start: 20210430, end: 202209
  2. XIFAXAN [Suspect]
     Active Substance: RIFAXIMIN
     Indication: Hepatic cirrhosis
     Route: 048
     Dates: start: 202209
  3. PREDNISONE [Concomitant]
     Active Substance: PREDNISONE
     Indication: Product used for unknown indication
     Dosage: 40 MG IN A LIQUID FORM OF 13.3 ML
     Dates: start: 20210408, end: 20210505

REACTIONS (11)
  - Photophobia [Not Recovered/Not Resolved]
  - Condition aggravated [Not Recovered/Not Resolved]
  - Tremor [Unknown]
  - Headache [Recovered/Resolved]
  - Malaise [Not Recovered/Not Resolved]
  - Asthenia [Unknown]
  - Abnormal dreams [Not Recovered/Not Resolved]
  - Dizziness [Unknown]
  - Fatigue [Unknown]
  - Off label use [Unknown]
  - Patient dissatisfaction with treatment [Unknown]

NARRATIVE: CASE EVENT DATE: 20210101
